FAERS Safety Report 5598506-5 (Version None)
Quarter: 2008Q1

REPORT INFORMATION
  Report Type: 
  Country: None (occurrence: None)
  Receive Date: 20080122
  Receipt Date: 20080111
  Transmission Date: 20080703
  Serious: Yes (Other)
  Sender: FDA-Public Use
  Company Number: AU-ASTRAZENECA-2007AP08211

PATIENT
  Age: 46 Year
  Sex: Male
  Weight: 101 kg

DRUGS (7)
  1. CRESTOR [Suspect]
     Indication: BLOOD CHOLESTEROL INCREASED
     Route: 048
     Dates: start: 20070921, end: 20070922
  2. MS CONTIN [Concomitant]
     Indication: PAIN
     Route: 048
     Dates: start: 20040101
  3. MS CONTIN [Concomitant]
     Route: 048
     Dates: start: 20060101
  4. PROTHIADEN [Concomitant]
     Indication: INSOMNIA
     Route: 048
  5. PROTHIADEN [Concomitant]
     Indication: PAIN
     Route: 048
  6. STILNOX [Concomitant]
     Indication: INSOMNIA
     Route: 048
  7. STILNOX [Concomitant]
     Indication: PAIN
     Route: 048

REACTIONS (2)
  - LIP SWELLING [None]
  - NAUSEA [None]
